FAERS Safety Report 10162443 (Version 2)
Quarter: 2014Q2

REPORT INFORMATION
  Report Type: Spontaneous
  Country: DE (occurrence: None)
  Receive Date: 20140507
  Receipt Date: 20140512
  Transmission Date: 20141212
  Serious: Yes (Other)
  Sender: FDA-Public Use
  Company Number: AUR-APL-2014-05262

PATIENT
  Age: 1 Day
  Sex: Male
  Weight: 3.05 kg

DRUGS (1)
  1. BISOPROLOL [Suspect]
     Indication: TACHYCARDIA
     Dosage: 2.5MG (2.5MG, 1 IN 1
     Dates: start: 20121022, end: 20130712

REACTIONS (2)
  - Foetal exposure during pregnancy [None]
  - Hypoglycaemia neonatal [None]
